FAERS Safety Report 5424229-9 (Version None)
Quarter: 2007Q3

REPORT INFORMATION
  Report Type: 
  Country: None (occurrence: None)
  Receive Date: 20070822
  Receipt Date: 20070813
  Transmission Date: 20080115
  Serious: Yes (Other)
  Sender: FDA-Public Use
  Company Number: 2007RR-09154

PATIENT
  Age: 18 Year
  Sex: 0

DRUGS (12)
  1. CLARITHROMYCIN [Suspect]
     Dosage: 500, MG, BID
  2. AMOXICILLIN [Suspect]
     Dosage: 1 G
  3. FENTANYL [Concomitant]
  4. PROPOFOL [Concomitant]
  5. ISOFLURANE [Concomitant]
  6. ROCURRONIUM (ROCURRONIUM) [Concomitant]
  7. CLINDAMYCIN HYDROCHLORIDE (CLINDAMYCIN) [Concomitant]
  8. GENTAMICIN [Concomitant]
  9. BUPIVACAINE [Concomitant]
  10. KETOROLAC (KETOROLAC) [Concomitant]
  11. ONDANSETRON HCL [Concomitant]
  12. MORPHINE SULPHATE (MORPHINE) [Concomitant]

REACTIONS (4)
  - ACUTE PSYCHOSIS [None]
  - ANXIETY [None]
  - HOIGNE'S SYNDROME [None]
  - INSOMNIA [None]
